FAERS Safety Report 16948318 (Version 1)
Quarter: 2019Q4

REPORT INFORMATION
  Report Type: Spontaneous
  Country: PT (occurrence: PT)
  Receive Date: 20191022
  Receipt Date: 20191022
  Transmission Date: 20200122
  Serious: Yes (Hospitalization, Other)
  Sender: FDA-Public Use
  Company Number: PT-BAXTER-2019BAX020808

PATIENT
  Age: 29 Year
  Sex: Male

DRUGS (3)
  1. DOXIL [Suspect]
     Active Substance: DOXORUBICIN HYDROCHLORIDE
     Indication: KAPOSI^S SARCOMA AIDS RELATED
     Route: 065
  2. EMTRICITABINE W/TENOFOVIR DISOPROXIL FUMARATE [Suspect]
     Active Substance: EMTRICITABINE\TENOFOVIR DISOPROXIL
     Indication: PRODUCT USED FOR UNKNOWN INDICATION
     Route: 065
  3. DOLUTEGRAVIR [Suspect]
     Active Substance: DOLUTEGRAVIR
     Indication: ACQUIRED IMMUNODEFICIENCY SYNDROME
     Route: 065

REACTIONS (12)
  - Kaposi^s sarcoma [Recovering/Resolving]
  - Ascites [Unknown]
  - Cachexia [Unknown]
  - Lymphoedema [Unknown]
  - Condition aggravated [Recovering/Resolving]
  - Chylothorax [Unknown]
  - Immune reconstitution inflammatory syndrome [Unknown]
  - Malnutrition [Unknown]
  - Pericardial effusion [Unknown]
  - Pleural effusion [Unknown]
  - Hypoalbuminaemia [Unknown]
  - Abdominal distension [Unknown]
